FAERS Safety Report 6569423-9 (Version None)
Quarter: 2010Q1

REPORT INFORMATION
  Report Type: 
  Country: None (occurrence: None)
  Receive Date: 20100204
  Receipt Date: 20100203
  Transmission Date: 20100710
  Serious: Yes (Other)
  Sender: FDA-Public Use
  Company Number: GB-ALLERGAN-1000224US

PATIENT
  Age: 6 Year
  Sex: Male

DRUGS (1)
  1. BOTOX [Suspect]
     Indication: CEREBRAL PALSY
     Dosage: UNK
     Route: 030
     Dates: start: 20091027, end: 20091027

REACTIONS (1)
  - CONVULSION [None]
